FAERS Safety Report 21888145 (Version 1)
Quarter: 2023Q1

REPORT INFORMATION
  Report Type: Spontaneous
  Country: IT (occurrence: IT)
  Receive Date: 20230120
  Receipt Date: 20230120
  Transmission Date: 20230418
  Serious: Yes (Other)
  Sender: FDA-Public Use
  Company Number: IT-SUN PHARMACEUTICAL INDUSTRIES LTD-2022RR-373909

PATIENT
  Age: 7 Month
  Sex: Female

DRUGS (12)
  1. DEXAMETHASONE [Suspect]
     Active Substance: DEXAMETHASONE
     Indication: Off label use
     Dosage: 0.15 MILLIGRAM/KILOGRAM, DAILY
     Route: 065
     Dates: start: 202112
  2. CEFTRIAXONE [Suspect]
     Active Substance: CEFTRIAXONE
     Indication: Off label use
     Dosage: 50 MILLIGRAM/KILOGRAM, DAILY
     Route: 065
     Dates: start: 202112
  3. HEPARIN [Suspect]
     Active Substance: HEPARIN SODIUM
     Indication: Off label use
     Dosage: 100 U/ KILOGRAM BPD, DAILY
     Route: 065
     Dates: start: 202112
  4. REMDESIVIR [Suspect]
     Active Substance: REMDESIVIR
     Indication: Off label use
     Dosage: 5 MILLIGRAM/KILOGRAM
     Route: 065
  5. REMDESIVIR [Suspect]
     Active Substance: REMDESIVIR
     Dosage: 2.5 MILLIGRAM/KILOGRAM
     Route: 065
  6. TOCILIZUMAB [Suspect]
     Active Substance: TOCILIZUMAB
     Indication: Off label use
     Dosage: UNK
     Route: 065
     Dates: start: 202112
  7. CASIRIVIMAB\IMDEVIMAB [Suspect]
     Active Substance: CASIRIVIMAB\IMDEVIMAB
     Indication: Off label use
     Dosage: UNK
     Route: 065
     Dates: start: 202112
  8. NOREPINEPHRINE [Concomitant]
     Active Substance: NOREPINEPHRINE
     Indication: Septic shock
     Dosage: MAX DOSE 0.15 MILLIGRAM/KILOGRAM/MINUTE
     Route: 065
  9. PIPERACILLIN SODIUM\TAZOBACTAM SODIUM [Concomitant]
     Active Substance: PIPERACILLIN SODIUM\TAZOBACTAM SODIUM
     Indication: Bacterial infection
     Dosage: 100 MILLIGRAM/KILOGRAM, TID
     Route: 065
  10. MEROPENEM [Concomitant]
     Active Substance: MEROPENEM
     Indication: Bacterial infection
     Dosage: 40 MILLIGRAM/KILOGRAM, TID
     Route: 065
  11. AMPHOTERICIN B [Concomitant]
     Active Substance: AMPHOTERICIN B
     Indication: Bacterial infection
     Dosage: 5 MILLIGRAM/KILOGRAM
     Route: 065
  12. MICAFUNGIN [Concomitant]
     Active Substance: MICAFUNGIN
     Indication: Fungal infection
     Dosage: UNK
     Route: 065

REACTIONS (1)
  - Leukopenia [Recovering/Resolving]
